FAERS Safety Report 5423731-3 (Version None)
Quarter: 2007Q3

REPORT INFORMATION
  Report Type: 
  Country: None (occurrence: None)
  Receive Date: 20070727
  Receipt Date: 20040310
  Transmission Date: 20080115
  Serious: Yes (Hospitalization)
  Sender: FDA-Public Use
  Company Number: THYM-10188

PATIENT
  Age: 37 Year
  Sex: Male
  Weight: 62.1 kg

DRUGS (2)
  1. THYMOGLOBULIN [Suspect]
     Indication: IMMUNOSUPPRESSION
     Dosage: 1.5 MG/KG QD
     Dates: start: 20040210, end: 20040213
  2. PROGRAF [Concomitant]

REACTIONS (1)
  - PULMONARY OEDEMA [None]
